FAERS Safety Report 6974960-9 (Version None)
Quarter: 2010Q3

REPORT INFORMATION
  Report Type: 
  Country: None (occurrence: None)
  Receive Date: 20100909
  Receipt Date: 20090112
  Transmission Date: 20110219
  Serious: No
  Sender: FDA-Public Use
  Company Number: US-WYE-H07669809

PATIENT
  Sex: Female
  Weight: 94.43 kg

DRUGS (6)
  1. PRISTIQ [Suspect]
     Indication: ANXIETY DISORDER
     Route: 048
     Dates: start: 20090109
  2. ZYRTEC [Concomitant]
  3. ALPRAZOLAM [Concomitant]
  4. SINGULAIR [Concomitant]
  5. PREVACID [Concomitant]
  6. BENICAR [Concomitant]

REACTIONS (10)
  - ABDOMINAL DISTENSION [None]
  - ANXIETY [None]
  - CONDITION AGGRAVATED [None]
  - DYSPEPSIA [None]
  - FEELING HOT [None]
  - HYPOAESTHESIA [None]
  - MEDICATION RESIDUE [None]
  - NAUSEA [None]
  - NIGHT SWEATS [None]
  - PARAESTHESIA [None]
